FAERS Safety Report 4534493-6 (Version None)
Quarter: 2004Q4

REPORT INFORMATION
  Report Type: 
  Country: None (occurrence: None)
  Receive Date: 20041222
  Receipt Date: 20041208
  Transmission Date: 20050328
  Serious: Yes (Hospitalization)
  Sender: FDA-Public Use
  Company Number: DEWYE264808DEC04

PATIENT
  Age: 53 Year
  Sex: Female

DRUGS (10)
  1. ENBREL [Suspect]
     Indication: RHEUMATOID ARTHRITIS
     Dosage: UNKNOWN
     Route: 058
     Dates: start: 20020301, end: 20040501
  2. ARAVA [Concomitant]
     Indication: RHEUMATOID ARTHRITIS
     Dosage: UNKNOWN
     Route: 048
     Dates: start: 20020601, end: 20040501
  3. DECORTIN-H [Concomitant]
  4. L-THYROXIN [Concomitant]
  5. FOSAMAX [Concomitant]
  6. NOVAMINSULFON-RATIOPHARM [Concomitant]
  7. VALORON N [Concomitant]
  8. CALCIUM [Concomitant]
  9. PANTOZOL [Concomitant]
  10. ACETYLCYSTEINE [Concomitant]

REACTIONS (1)
  - VASCULITIS [None]
